FAERS Safety Report 7791419-X (Version None)
Quarter: 2011Q4

REPORT INFORMATION
  Report Type: 
  Country: None (occurrence: None)
  Receive Date: 20111003
  Receipt Date: 20110921
  Transmission Date: 20120403
  Serious: Yes (Other)
  Sender: FDA-Public Use
  Company Number: CA-JNJFOC-20110910419

PATIENT
  Sex: Female
  Weight: 65.5 kg

DRUGS (5)
  1. REMICADE [Suspect]
     Route: 042
     Dates: start: 20100901
  2. REMICADE [Suspect]
     Indication: CROHN'S DISEASE
     Route: 042
     Dates: start: 20110921, end: 20110921
  3. SYMBICORT [Concomitant]
     Route: 065
  4. VALACYCLOVIR [Concomitant]
     Route: 065
  5. UNIPHYL [Concomitant]
     Route: 065

REACTIONS (5)
  - LIP SWELLING [None]
  - HEADACHE [None]
  - INFUSION RELATED REACTION [None]
  - HYPOAESTHESIA ORAL [None]
  - SWELLING [None]
